FAERS Safety Report 22650214 (Version 3)
Quarter: 2024Q1

REPORT INFORMATION
  Report Type: Spontaneous
  Country: JP (occurrence: JP)
  Receive Date: 20230628
  Receipt Date: 20240118
  Transmission Date: 20240409
  Serious: Yes (Disabling, Other)
  Sender: FDA-Public Use
  Company Number: JP-OTSUKA-2023_012430

PATIENT
  Age: 50 Year
  Sex: Female

DRUGS (8)
  1. SAMSCA [Suspect]
     Active Substance: TOLVAPTAN
     Indication: Cardiac failure
     Dosage: 7.5 MG/DAY
     Route: 048
     Dates: start: 20230506, end: 20230506
  2. SAMSCA [Suspect]
     Active Substance: TOLVAPTAN
     Indication: Pleural effusion
  3. SAMSCA [Suspect]
     Active Substance: TOLVAPTAN
     Indication: Cardiac failure congestive
  4. EDOXABAN TOSYLATE [Concomitant]
     Active Substance: EDOXABAN TOSYLATE
     Indication: Product used for unknown indication
     Dosage: 30 MG/DAY
     Route: 048
  5. AZOSEMIDE [Concomitant]
     Active Substance: AZOSEMIDE
     Indication: Product used for unknown indication
     Dosage: 15 MG/DAY
     Route: 048
  6. SPIRONOLACTONE [Concomitant]
     Active Substance: SPIRONOLACTONE
     Indication: Product used for unknown indication
     Dosage: 12.5 MG/DAY
     Route: 048
  7. METHIMAZOLE [Concomitant]
     Active Substance: METHIMAZOLE
     Indication: Product used for unknown indication
     Dosage: 30 MG/DAY
     Route: 048
  8. POTASSIUM IODIDE [Concomitant]
     Active Substance: POTASSIUM IODIDE
     Indication: Product used for unknown indication
     Dosage: 200 MG/DAY
     Route: 048

REACTIONS (5)
  - Delirium [Recovered/Resolved]
  - Depressed level of consciousness [Recovered/Resolved]
  - Osmotic demyelination syndrome [Recovering/Resolving]
  - Rapid correction of hyponatraemia [Unknown]
  - Hypernatraemia [Recovered/Resolved]

NARRATIVE: CASE EVENT DATE: 20230507
